FAERS Safety Report 23331990 (Version 1)
Quarter: 2023Q4

REPORT INFORMATION
  Report Type: Spontaneous
  Country: None (occurrence: US)
  Receive Date: 20231222
  Receipt Date: 20231222
  Transmission Date: 20240110
  Serious: Yes (Other)
  Sender: FDA-Public Use
  Company Number: US-GREER Laboratories, Inc.-2149709

PATIENT
  Age: 14 Year
  Sex: Male
  Weight: 58.182 kg

DRUGS (12)
  1. ANTHOXANTHUM ODORATUM POLLEN\DACTYLIS GLOMERATA POLLEN\PHLEUM PRATENSE [Suspect]
     Active Substance: ANTHOXANTHUM ODORATUM POLLEN\DACTYLIS GLOMERATA POLLEN\PHLEUM PRATENSE POLLEN
     Indication: Seasonal allergy
     Route: 058
     Dates: start: 20230823, end: 20230913
  2. EASTERN 8 TREE POLLEN MIX [Suspect]
     Active Substance: ACER SACCHARUM POLLEN\BETULA NIGRA POLLEN\CARYA OVATA POLLEN\FAGUS GRANDIFOLIA POLLEN\FRAXINUS AMERI
     Route: 058
     Dates: start: 20230823, end: 20230913
  3. AMERICAN SYCAMORE POLLEN [Suspect]
     Active Substance: PLATANUS OCCIDENTALIS POLLEN
     Route: 058
     Dates: start: 20230823, end: 20230913
  4. BLACK WALNUT (JUGLANS NIGRA POLLEN) [Suspect]
     Active Substance: JUGLANS NIGRA POLLEN
     Route: 058
     Dates: start: 20230823, end: 20230913
  5. BLACK WILLOW POLLEN [Suspect]
     Active Substance: SALIX NIGRA POLLEN
     Route: 058
     Dates: start: 20230823, end: 20230913
  6. DERMATOPHAGOIDES FARINAE\DERMATOPHAGOIDES PTERONYSSINUS [Suspect]
     Active Substance: DERMATOPHAGOIDES FARINAE\DERMATOPHAGOIDES PTERONYSSINUS
     Route: 058
     Dates: start: 20230823, end: 20230913
  7. SHORT/GIANT RAGWEED MIXTURE [Suspect]
     Active Substance: AMBROSIA ARTEMISIIFOLIA POLLEN\AMBROSIA TRIFIDA POLLEN
     Route: 058
     Dates: start: 20230823, end: 20230913
  8. COMMON MUGWORT POLLEN [Suspect]
     Active Substance: ARTEMISIA VULGARIS POLLEN
     Route: 058
     Dates: start: 20230823, end: 20230913
  9. SHEEP SORREL POLLEN [Suspect]
     Active Substance: RUMEX ACETOSELLA POLLEN
     Route: 058
     Dates: start: 20230823, end: 20230913
  10. LAMBS QUARTERS POLLEN [Suspect]
     Active Substance: CHENOPODIUM ALBUM POLLEN
     Route: 058
     Dates: start: 20230823, end: 20230913
  11. ENGLISH PLANTAIN POLLEN [Suspect]
     Active Substance: PLANTAGO LANCEOLATA POLLEN
     Route: 058
     Dates: start: 20230823, end: 20230913
  12. XYZAL [Concomitant]
     Active Substance: LEVOCETIRIZINE DIHYDROCHLORIDE

REACTIONS (1)
  - Anaphylactic reaction [Recovered/Resolved]

NARRATIVE: CASE EVENT DATE: 20230913
